FAERS Safety Report 15689599 (Version 2)
Quarter: 2018Q4

REPORT INFORMATION
  Report Type: Report from Study
  Country: US (occurrence: US)
  Receive Date: 20181205
  Receipt Date: 20181207
  Transmission Date: 20190205
  Serious: Yes (Other)
  Sender: FDA-Public Use
  Company Number: US-GILEAD-2018-0370351

PATIENT
  Age: 60 Year
  Sex: Female
  Weight: 115.19 kg

DRUGS (4)
  1. ADCIRCA [Concomitant]
     Active Substance: TADALAFIL
  2. ORENITRAM [Suspect]
     Active Substance: TREPROSTINIL
     Indication: PULMONARY ARTERIAL HYPERTENSION
     Dosage: 0125 MG, TID
     Route: 048
     Dates: start: 20181019
  3. ORENITRAM [Suspect]
     Active Substance: TREPROSTINIL
     Dosage: 0.5 MG, TID
     Route: 048
     Dates: start: 20181019
  4. AMBRISENTAN [Suspect]
     Active Substance: AMBRISENTAN
     Indication: PULMONARY ARTERIAL HYPERTENSION
     Dosage: 5 MG, QD
     Route: 065
     Dates: start: 20181019

REACTIONS (5)
  - Pulmonary arterial hypertension [Unknown]
  - Nasal congestion [Not Recovered/Not Resolved]
  - Intentional dose omission [Recovered/Resolved]
  - Cardiac failure chronic [Unknown]
  - Diarrhoea [Unknown]
